FAERS Safety Report 23602987 (Version 1)
Quarter: 2024Q1

REPORT INFORMATION
  Report Type: Report from Study
  Country: CA (occurrence: CA)
  Receive Date: 20240306
  Receipt Date: 20240306
  Transmission Date: 20240410
  Serious: Yes (Hospitalization, Other)
  Sender: FDA-Public Use
  Company Number: CA-ABBVIE-5665314

PATIENT
  Sex: Male

DRUGS (3)
  1. RINVOQ [Suspect]
     Active Substance: UPADACITINIB
     Indication: Ankylosing spondylitis
     Dosage: FORM STRENGTH 30 MILLIGRAMS
     Route: 048
     Dates: start: 20211203
  2. RINVOQ [Suspect]
     Active Substance: UPADACITINIB
     Indication: Ankylosing spondylitis
     Dosage: FORM STRENGTH 30 MILLIGRAMS
     Route: 048
     Dates: start: 2024
  3. INFLIXIMAB [Suspect]
     Active Substance: INFLIXIMAB
     Indication: Product used for unknown indication
     Route: 065

REACTIONS (13)
  - Anastomotic ulcer [Unknown]
  - Small intestinal obstruction [Unknown]
  - Drug ineffective [Unknown]
  - Enteropathic spondylitis [Unknown]
  - Pulmonary embolism [Unknown]
  - Crohn^s disease [Unknown]
  - Ankylosing spondylitis [Unknown]
  - Arthralgia [Not Recovered/Not Resolved]
  - Joint stiffness [Unknown]
  - Loss of personal independence in daily activities [Unknown]
  - Ileal stenosis [Unknown]
  - Gastrointestinal wall thickening [Unknown]
  - Large intestinal stenosis [Unknown]

NARRATIVE: CASE EVENT DATE: 20220901
